FAERS Safety Report 8531344-X (Version None)
Quarter: 2012Q3

REPORT INFORMATION
  Report Type: 
  Country: None (occurrence: None)
  Receive Date: 20120723
  Receipt Date: 20120717
  Transmission Date: 20120928
  Serious: Yes (Hospitalization)
  Sender: FDA-Public Use
  Company Number: PH-EISAI INC-E2090-02216-SPO-PH

PATIENT
  Age: 28 Year
  Sex: Male

DRUGS (4)
  1. ZONEGRAN [Suspect]
     Route: 048
     Dates: start: 20120715, end: 20120716
  2. CLOPIDOGREL [Concomitant]
     Indication: PROPHYLAXIS
     Dosage: 75 MG
     Route: 048
     Dates: start: 20120201
  3. GLICLAZIDE [Concomitant]
     Dosage: 30 MG
     Route: 048
     Dates: start: 20120201
  4. AMLODIPINE [Concomitant]
     Indication: HYPERTENSION
     Dosage: 5 MG
     Route: 048
     Dates: start: 20120201

REACTIONS (1)
  - RASH [None]
